FAERS Safety Report 13642931 (Version 1)
Quarter: 2017Q2

REPORT INFORMATION
  Report Type: Spontaneous
  Country: US (occurrence: US)
  Receive Date: 20170612
  Receipt Date: 20170612
  Transmission Date: 20170830
  Serious: No
  Sender: FDA-Public Use
  Company Number: US-SEPTODONT-201603454

PATIENT
  Sex: Female

DRUGS (1)
  1. SEPTOCAINE AND EPINEPHRINE [Suspect]
     Active Substance: ARTICAINE HYDROCHLORIDE\EPINEPHRINE BITARTRATE
     Indication: LOCAL ANAESTHESIA
     Dosage: 0.5 - 1 CARTRIDGE ADMINISTERED IN VESTIBULAR FOLD ADJACENT TO EACH OF THE TEETH REQUIRING TREATMENT
     Route: 002

REACTIONS (3)
  - Mouth swelling [Unknown]
  - Lip swelling [Unknown]
  - Post procedural swelling [Unknown]
